FAERS Safety Report 12558238 (Version 1)
Quarter: 2016Q3

REPORT INFORMATION
  Report Type: Spontaneous
  Country: US (occurrence: US)
  Receive Date: 20160714
  Receipt Date: 20160714
  Transmission Date: 20161109
  Serious: No
  Sender: FDA-Public Use
  Company Number: US-ACTELION-A-US2016-138971

PATIENT
  Age: 62 Year
  Sex: Female
  Weight: 74.83 kg

DRUGS (2)
  1. OPSUMIT [Suspect]
     Active Substance: MACITENTAN
     Indication: PULMONARY HYPERTENSION
     Route: 048
  2. REMODULIN [Suspect]
     Active Substance: TREPROSTINIL
     Indication: PULMONARY HYPERTENSION
     Dosage: 16 NG/KG, PER MIN
     Route: 058
     Dates: start: 20160401

REACTIONS (5)
  - Feeling abnormal [Unknown]
  - Diarrhoea [Unknown]
  - Myalgia [Unknown]
  - Pain in jaw [Unknown]
  - Headache [Unknown]

NARRATIVE: CASE EVENT DATE: 201605
